FAERS Safety Report 6490475-9 (Version None)
Quarter: 2009Q4

REPORT INFORMATION
  Report Type: 
  Country: None (occurrence: None)
  Receive Date: 20091210
  Receipt Date: 20091210
  Transmission Date: 20100525
  Serious: Yes (Hospitalization)
  Sender: FDA-Public Use
  Company Number: None

PATIENT
  Age: 45 Year
  Sex: Female
  Weight: 74.3899 kg

DRUGS (7)
  1. DEPAKOTE [Suspect]
     Indication: BIPOLAR DISORDER
  2. SEROQUEL XR [Suspect]
     Indication: GENERALISED ANXIETY DISORDER
  3. ASPIRIN [Concomitant]
  4. FERROUS SULFATE TAB [Concomitant]
  5. MULTI-VITAMIN [Concomitant]
  6. POTASSIUM [Concomitant]
  7. #3 PLACEBO [Suspect]

REACTIONS (2)
  - ANAEMIA [None]
  - SYNCOPE [None]
